FAERS Safety Report 22659762 (Version 1)
Quarter: 2023Q2

REPORT INFORMATION
  Report Type: Spontaneous
  Country: US (occurrence: None)
  Receive Date: 20230630
  Receipt Date: 20230630
  Transmission Date: 20230721
  Serious: Yes (Other)
  Sender: FDA-Public Use
  Company Number: None

PATIENT
  Sex: Female

DRUGS (1)
  1. COSENTYX [Suspect]
     Active Substance: SECUKINUMAB
     Indication: Ankylosing spondylitis
     Dosage: OTHER QUANTITY : 800;?FREQUENCY : MONTHLY;?
     Route: 058
     Dates: start: 20220204

REACTIONS (6)
  - Urinary tract infection [None]
  - Eye infection [None]
  - Hordeolum [None]
  - Atrial fibrillation [None]
  - Therapy interrupted [None]
  - Therapeutic product effect decreased [None]
